FAERS Safety Report 17921263 (Version 8)
Quarter: 2021Q1

REPORT INFORMATION
  Report Type: Report from Study
  Country: None (occurrence: CO)
  Receive Date: 20200622
  Receipt Date: 20210326
  Transmission Date: 20210419
  Serious: Yes (Hospitalization, Disabling, Other)
  Sender: FDA-Public Use
  Company Number: CO-ABBVIE-20K-036-3286452-00

PATIENT
  Age: 50 Year
  Sex: Female
  Weight: 59 kg

DRUGS (2)
  1. HUMIRA [Suspect]
     Active Substance: ADALIMUMAB
     Indication: RHEUMATOID ARTHRITIS
     Route: 058
     Dates: start: 20190127, end: 20200526
  2. HUMIRA [Suspect]
     Active Substance: ADALIMUMAB
     Route: 058
     Dates: start: 20200630, end: 20210104

REACTIONS (28)
  - Purulent discharge [Recovering/Resolving]
  - Musculoskeletal stiffness [Not Recovered/Not Resolved]
  - Blood test abnormal [Unknown]
  - Arterial stenosis [Not Recovered/Not Resolved]
  - Pain in extremity [Not Recovered/Not Resolved]
  - Therapeutic product effect decreased [Recovering/Resolving]
  - Peripheral swelling [Unknown]
  - Immunosuppression [Recovering/Resolving]
  - Haematoma [Recovering/Resolving]
  - Pain in extremity [Recovering/Resolving]
  - Myocardial infarction [Recovering/Resolving]
  - Furuncle [Not Recovered/Not Resolved]
  - Furuncle [Recovering/Resolving]
  - Arterial disorder [Recovering/Resolving]
  - Arterial occlusive disease [Not Recovered/Not Resolved]
  - Joint range of motion decreased [Unknown]
  - Skin infection [Recovering/Resolving]
  - Vaginal abscess [Recovering/Resolving]
  - Procedural pain [Unknown]
  - Post procedural complication [Unknown]
  - Sleep disorder [Recovering/Resolving]
  - Cyanosis [Recovered/Resolved]
  - Skin discolouration [Unknown]
  - Muscle rigidity [Not Recovered/Not Resolved]
  - Blood pressure increased [Recovering/Resolving]
  - Rheumatoid arthritis [Not Recovered/Not Resolved]
  - Procedural haemorrhage [Recovering/Resolving]
  - Cyanosis [Not Recovered/Not Resolved]

NARRATIVE: CASE EVENT DATE: 201912
